FAERS Safety Report 8288731-7 (Version None)
Quarter: 2012Q2

REPORT INFORMATION
  Report Type: 
  Country: None (occurrence: None)
  Receive Date: 20120417
  Receipt Date: 20120405
  Transmission Date: 20120825
  Serious: No
  Sender: FDA-Public Use
  Company Number: US-BIOGENIDEC-2012BI010660

PATIENT
  Age: 48 Year
  Sex: Female

DRUGS (3)
  1. TOPAMAX [Concomitant]
     Indication: HEADACHE
  2. AVONEX [Concomitant]
     Indication: MULTIPLE SCLEROSIS
     Route: 030
  3. TYSABRI [Suspect]
     Indication: MULTIPLE SCLEROSIS
     Route: 042
     Dates: start: 20120321

REACTIONS (1)
  - HYPERSENSITIVITY [None]
